FAERS Safety Report 9842373 (Version 1)
Quarter: 2014Q1

REPORT INFORMATION
  Report Type: Report from Study
  Country: CO (occurrence: CO)
  Receive Date: 20140124
  Receipt Date: 20140124
  Transmission Date: 20141002
  Serious: Yes (Death, Other)
  Sender: FDA-Public Use
  Company Number: CO-BRISTOL-MYERS SQUIBB COMPANY-20033213

PATIENT
  Age: 44 Year
  Sex: Female

DRUGS (1)
  1. IXEMPRA [Suspect]
     Indication: BREAST CANCER METASTATIC
     Route: 042

REACTIONS (6)
  - Cardio-respiratory arrest [Fatal]
  - Abdominal pain [Unknown]
  - Myalgia [Unknown]
  - Headache [Unknown]
  - Gallbladder pain [Unknown]
  - Oropharyngeal pain [Unknown]
